FAERS Safety Report 8831932 (Version 1)
Quarter: 2012Q4

REPORT INFORMATION
  Report Type: 
  Country: US (occurrence: US)
  Receive Date: 20121008
  Receipt Date: 20121008
  Transmission Date: 20130627
  Serious: Yes (Hospitalization)
  Sender: FDA-Public Use
  Company Number: US-BAYER-2012-102995

PATIENT
  Age: 27 Year
  Sex: Female

DRUGS (11)
  1. YASMIN [Suspect]
  2. CONCERTA [Concomitant]
     Indication: ATTENTION DEFICIT/HYPERACTIVITY DISORDER
     Dosage: 72 mg, QD
     Route: 048
  3. RITALIN LA [Concomitant]
     Dosage: 40 mg, UNK
     Route: 048
  4. LOTRIMIN [Concomitant]
  5. DIFLUCAN [Concomitant]
  6. EFFEXOR XR [Concomitant]
     Dosage: 37.5 mg, QD
     Route: 048
  7. TYLENOL [Concomitant]
  8. BENADRYL [Concomitant]
  9. SARNA [Concomitant]
  10. VICODIN [Concomitant]
  11. EFFEXOR [Concomitant]

REACTIONS (3)
  - Deep vein thrombosis [None]
  - Pelvic venous thrombosis [None]
  - Phlebitis superficial [None]
